FAERS Safety Report 8186601-6 (Version None)
Quarter: 2012Q1

REPORT INFORMATION
  Report Type: 
  Country: None (occurrence: None)
  Receive Date: 20120302
  Receipt Date: 20120302
  Transmission Date: 20120608
  Serious: Yes (Hospitalization)
  Sender: FDA-Public Use
  Company Number: None

PATIENT
  Age: 67 Year
  Sex: Male
  Weight: 126.8 kg

DRUGS (1)
  1. CALCIUM ACETATE [Suspect]
     Indication: RENAL FAILURE CHRONIC
     Dosage: 2001 MG TID PO
     Route: 048
     Dates: start: 20110719, end: 20120116

REACTIONS (6)
  - HYPOKALAEMIA [None]
  - HYPOCALCAEMIA [None]
  - RENAL FAILURE ACUTE [None]
  - HYPOMAGNESAEMIA [None]
  - FEELING ABNORMAL [None]
  - DIARRHOEA [None]
